FAERS Safety Report 9271731 (Version 1)
Quarter: 2013Q2

REPORT INFORMATION
  Report Type: Spontaneous
  Country: US (occurrence: US)
  Receive Date: 20130506
  Receipt Date: 20130506
  Transmission Date: 20140414
  Serious: No
  Sender: FDA-Public Use
  Company Number: US-COVIDIEN/TYCO HEALTHCARE/MALLINCKRODT-T201203922

PATIENT
  Age: 37 Year
  Sex: Female

DRUGS (3)
  1. HYDROCODONE/ACETAMINOPHEN [Suspect]
     Indication: HEADACHE
     Dosage: 5 TIMES/DAY (TAKING MORE)
     Dates: start: 20121103
  2. HYDROCODONE W/ACETAMINOPHEN [Concomitant]
     Dosage: 10/500 MG, 5 TIMES/DAY
     Dates: start: 2010, end: 201211
  3. OXYCODONE [Concomitant]
     Indication: BREAKTHROUGH PAIN
     Dosage: 10 MG, QD
     Dates: start: 2011

REACTIONS (3)
  - Pain [Not Recovered/Not Resolved]
  - Intentional drug misuse [Not Recovered/Not Resolved]
  - Drug effect decreased [Not Recovered/Not Resolved]
